FAERS Safety Report 9216958 (Version 1)
Quarter: 2013Q2

REPORT INFORMATION
  Report Type: Spontaneous
  Country: US (occurrence: US)
  Receive Date: 20130408
  Receipt Date: 20130408
  Transmission Date: 20140414
  Serious: No
  Sender: FDA-Public Use
  Company Number: US-BAYER-2013-043557

PATIENT
  Sex: Female

DRUGS (14)
  1. BETASERON [Suspect]
     Indication: MULTIPLE SCLEROSIS
     Dosage: UNK UNK, QOD
     Route: 058
  2. AMPYRA [Concomitant]
  3. DETROL LA [Concomitant]
  4. GABAPENTIN [Concomitant]
  5. NIZATIDINE [Concomitant]
  6. BACLOFEN [Concomitant]
  7. HYDROCHLOROTHIAZIDE [Concomitant]
  8. LEVOTHROID [Concomitant]
  9. LOSARTAN [Concomitant]
  10. CALCIUM +VIT D [Concomitant]
  11. VITAMIN D [Concomitant]
  12. CRANBERRY [Concomitant]
  13. GLUCOS [Concomitant]
  14. CHONDROITIN [Concomitant]

REACTIONS (2)
  - Back pain [Unknown]
  - Fatigue [Recovering/Resolving]
